FAERS Safety Report 9708636 (Version 2)
Quarter: 2013Q4

REPORT INFORMATION
  Report Type: Spontaneous
  Country: IT (occurrence: IT)
  Receive Date: 20131125
  Receipt Date: 20131202
  Transmission Date: 20140711
  Serious: Yes (Life-Threatening, Hospitalization)
  Sender: FDA-Public Use
  Company Number: IT-ASTRAZENECA-2013SE86288

PATIENT
  Age: 24973 Day
  Sex: Female

DRUGS (6)
  1. SEROQUEL [Suspect]
     Indication: SUICIDE ATTEMPT
     Dosage: 25MG (6 TABLETS)+100MG (3 TABLETS) +200MG (1 TABLET) FILM COATED TABLETS, ONCE/SINGLE ADMINISTRATION
     Route: 048
     Dates: start: 20130803, end: 20130803
  2. ESIDREX [Suspect]
     Indication: SUICIDE ATTEMPT
     Route: 048
     Dates: start: 20130803, end: 20130803
  3. RIVOTRIL [Suspect]
     Indication: SUICIDE ATTEMPT
     Dosage: 2.5MG/ML ORAL DROPS, 5 ML ONCE/SINGLE ADMINISTRATION
     Route: 048
     Dates: start: 20130803, end: 20130803
  4. EUTIROX [Suspect]
     Indication: SUICIDE ATTEMPT
     Route: 048
     Dates: start: 20130803, end: 20130803
  5. ENAPREN [Suspect]
     Indication: SUICIDE ATTEMPT
     Route: 048
     Dates: start: 20130803, end: 20130803
  6. PRIADEL [Suspect]
     Route: 065
     Dates: start: 20130803, end: 20130803

REACTIONS (2)
  - Suicide attempt [Unknown]
  - Vomiting projectile [Recovered/Resolved]
